FAERS Safety Report 15218777 (Version 12)
Quarter: 2021Q3

REPORT INFORMATION
  Report Type: Other
  Country: DE (occurrence: DE)
  Receive Date: 20180731
  Receipt Date: 20210831
  Transmission Date: 20211014
  Serious: Yes (Hospitalization)
  Sender: FDA-Public Use
  Company Number: DE-ROCHE-2153470

PATIENT
  Age: 46 Year
  Sex: Female

DRUGS (15)
  1. LYRICA [Concomitant]
     Active Substance: PREGABALIN
     Dosage: 3?0?4
  2. SERTRALIN [Concomitant]
     Active Substance: SERTRALINE HYDROCHLORIDE
     Dosage: 1?0?0
  3. BACLOFEN. [Concomitant]
     Active Substance: BACLOFEN
     Dosage: 1?0?1
  4. SERTRALIN [Concomitant]
     Active Substance: SERTRALINE HYDROCHLORIDE
     Dosage: 1?0?0
  5. DEKRISTOL [Concomitant]
     Active Substance: CHOLECALCIFEROL
  6. VESIKUR [Concomitant]
     Active Substance: SOLIFENACIN SUCCINATE
  7. DRONABINOL. [Concomitant]
     Active Substance: DRONABINOL
     Dosage: 0?0?0.5 ML
  8. NOVALGIN (METAMIZOLE SODIUM) [Concomitant]
     Active Substance: METAMIZOLE SODIUM
     Dosage: 1?0?1
  9. DRONABINOL. [Concomitant]
     Active Substance: DRONABINOL
  10. OCREVUS [Suspect]
     Active Substance: OCRELIZUMAB
     Indication: PRIMARY PROGRESSIVE MULTIPLE SCLEROSIS
     Dosage: SECOND INFUSION ON 08/MAY/2018: 300 MG, 19/NOV/2018: 600 MG, 12/NOV/2019: 600 MG AND CURRENT DOSE: 0
     Route: 042
     Dates: start: 20180423
  11. RAMIPRIL. [Concomitant]
     Active Substance: RAMIPRIL
     Dosage: 1?0?1
  12. LYRICA [Concomitant]
     Active Substance: PREGABALIN
     Dosage: 1?0?1
  13. LYRICA [Concomitant]
     Active Substance: PREGABALIN
     Dosage: 1?0?2
  14. FAMPYRA [Concomitant]
     Active Substance: DALFAMPRIDINE
  15. BACLOFEN. [Concomitant]
     Active Substance: BACLOFEN
     Dosage: 1?0?2

REACTIONS (27)
  - Contusion [Recovered/Resolved]
  - Erythema [Recovered/Resolved]
  - Carpal tunnel syndrome [Recovering/Resolving]
  - Paraesthesia [Not Recovered/Not Resolved]
  - Peripheral coldness [Not Recovered/Not Resolved]
  - Hot flush [Not Recovered/Not Resolved]
  - Dizziness [Recovered/Resolved]
  - White blood cells urine positive [Recovered/Resolved]
  - Illness [Recovered/Resolved]
  - Fall [Unknown]
  - Insomnia [Recovered/Resolved]
  - Urinary tract infection [Recovered/Resolved]
  - Nasopharyngitis [Not Recovered/Not Resolved]
  - Hypoaesthesia [Not Recovered/Not Resolved]
  - Gastrointestinal infection [Recovered/Resolved]
  - Muscle twitching [Not Recovered/Not Resolved]
  - Bursitis [Not Recovered/Not Resolved]
  - Pain in extremity [Not Recovered/Not Resolved]
  - Sepsis [Recovered/Resolved]
  - Malaise [Recovered/Resolved]
  - Osteoarthritis [Not Recovered/Not Resolved]
  - Menopause [Unknown]
  - Off label use [Unknown]
  - Fatigue [Recovered/Resolved]
  - Restlessness [Recovering/Resolving]
  - Muscle tightness [Not Recovered/Not Resolved]
  - Inappropriate schedule of product administration [Unknown]

NARRATIVE: CASE EVENT DATE: 20180423
